FAERS Safety Report 6640377-X (Version None)
Quarter: 2010Q1

REPORT INFORMATION
  Report Type: 
  Country: None (occurrence: None)
  Receive Date: 20100303
  Receipt Date: 20090217
  Transmission Date: 20100710
  Serious: Yes (Hospitalization)
  Sender: FDA-Public Use
  Company Number: 614901

PATIENT
  Age: 73 Year
  Sex: Female

DRUGS (1)
  1. BONIVA [Suspect]
     Indication: DRUG USE FOR UNKNOWN INDICATION
     Dosage: 1 PER 3 MONTH INTRAVENOUS
     Route: 042
     Dates: start: 20080201

REACTIONS (2)
  - PAIN IN EXTREMITY [None]
  - PNEUMONIA [None]
